FAERS Safety Report 24834651 (Version 4)
Quarter: 2025Q2

REPORT INFORMATION
  Report Type: Report from Study
  Country: CN (occurrence: CN)
  Receive Date: 20250113
  Receipt Date: 20250625
  Transmission Date: 20250716
  Serious: Yes (Hospitalization)
  Sender: ABBVIE
  Company Number: CN-ABBVIE-6076291

PATIENT
  Age: 63 Year
  Sex: Female
  Weight: 60 kg

DRUGS (24)
  1. OZURDEX [Suspect]
     Active Substance: DEXAMETHASONE
     Indication: Diabetic retinal oedema
     Route: 050
     Dates: start: 20241206, end: 20241206
  2. INSULIN ASPART\INSULIN DEGLUDEC [Concomitant]
     Active Substance: INSULIN ASPART\INSULIN DEGLUDEC
     Indication: Type 2 diabetes mellitus
     Dosage: 16 IU (INTERNATIONAL UNIT)
     Route: 058
     Dates: start: 2024
  3. INSULIN DEGLUDEC [Concomitant]
     Active Substance: INSULIN DEGLUDEC
     Indication: Type 2 diabetes mellitus
     Route: 058
     Dates: start: 20250411, end: 20250411
  4. AMBROXOL HYDROCHLORIDE [Concomitant]
     Active Substance: AMBROXOL HYDROCHLORIDE
     Indication: Prophylaxis
     Dosage: SOLUTION FOR INHALATION?RESPIRATORY (INHALATION)
     Route: 055
     Dates: start: 20250409, end: 20250412
  5. AMBROXOL HYDROCHLORIDE [Concomitant]
     Active Substance: AMBROXOL HYDROCHLORIDE
     Indication: Prophylaxis
     Dosage: SOLUTION FOR INHALATION?RESPIRATORY (INHALATION)
     Route: 055
     Dates: start: 20250408, end: 20250408
  6. DAPAGLIFLOZIN [Concomitant]
     Active Substance: DAPAGLIFLOZIN
     Indication: Type 2 diabetes mellitus
     Dosage: 10 MILLIGRAM
     Route: 048
     Dates: start: 2024, end: 2025
  7. INSULIN GLARGINE [Concomitant]
     Active Substance: INSULIN GLARGINE
     Indication: Type 2 diabetes mellitus
     Dosage: 26 IU (INTERNATIONAL UNIT)?INJECTION
     Route: 058
     Dates: start: 2016, end: 2024
  8. LEVOFLOXACIN HYDROCHLORIDE [Concomitant]
     Active Substance: LEVOFLOXACIN HYDROCHLORIDE
     Indication: Prophylaxis
     Dates: start: 20241206, end: 20241206
  9. LEVOFLOXACIN HYDROCHLORIDE [Concomitant]
     Active Substance: LEVOFLOXACIN HYDROCHLORIDE
     Indication: Prophylaxis
     Dosage: OPHTHALMIC
     Dates: start: 20241207, end: 20241209
  10. ACETYLCYSTEINE [Concomitant]
     Active Substance: ACETYLCYSTEINE
     Indication: Productive cough
     Dosage: 1 TABLET
     Route: 048
     Dates: start: 20250106, end: 20250107
  11. METFORMIN HYDROCHLORIDE [Concomitant]
     Active Substance: METFORMIN HYDROCHLORIDE
     Indication: Type 2 diabetes mellitus
     Dosage: 1 TABLET
     Route: 048
     Dates: start: 2013
  12. ACARBOSE [Concomitant]
     Active Substance: ACARBOSE
     Indication: Type 2 diabetes mellitus
     Dosage: 2 TABLET
     Route: 048
     Dates: start: 2013
  13. HEPARIN SODIUM [Concomitant]
     Active Substance: HEPARIN SODIUM
     Indication: Prophylaxis
     Dosage: 5000 IU
     Route: 058
     Dates: start: 20250409, end: 20250412
  14. CEFAZOLIN SODIUM [Concomitant]
     Active Substance: CEFAZOLIN SODIUM
     Indication: Prophylaxis
     Dosage: INJECTION
     Route: 042
     Dates: start: 20250408, end: 20250408
  15. CEFAZOLIN SODIUM [Concomitant]
     Active Substance: CEFAZOLIN SODIUM
     Indication: Prophylaxis
     Route: 042
     Dates: start: 20250406, end: 20250406
  16. CEFAZOLIN SODIUM [Concomitant]
     Active Substance: CEFAZOLIN SODIUM
     Indication: Prophylaxis
     Dosage: INJECTION
     Route: 042
     Dates: start: 20250407, end: 20250407
  17. Compound Liquorice [Concomitant]
     Indication: Product used for unknown indication
     Route: 048
     Dates: start: 20241229, end: 20250106
  18. FLURBIPROFEN AXETIL [Concomitant]
     Active Substance: FLURBIPROFEN AXETIL
     Indication: Postoperative analgesia
     Dates: start: 20250408, end: 20250410
  19. FLURBIPROFEN AXETIL [Concomitant]
     Active Substance: FLURBIPROFEN AXETIL
     Indication: Postoperative analgesia
     Dosage: INJECTION?ROA- INTRAVENOUS BOLUS
     Dates: start: 20250411, end: 20250411
  20. BUDESONIDE [Concomitant]
     Active Substance: BUDESONIDE
     Indication: Prophylaxis
     Dosage: ROA- RESPIRATORY (INHALATION), SUSPENSION FOR INHALATION
     Route: 065
     Dates: start: 20250408, end: 20250408
  21. BUDESONIDE [Concomitant]
     Active Substance: BUDESONIDE
     Indication: Prophylaxis
     Dosage: RESPIRATORY (INHALATION), SUSPENSION FOR INHALATION
     Route: 065
     Dates: start: 20250409, end: 20250412
  22. DEXTROSE\SODIUM CHLORIDE [Concomitant]
     Active Substance: DEXTROSE\SODIUM CHLORIDE
     Indication: Fluid replacement
     Route: 042
     Dates: start: 20250407, end: 20250407
  23. LEVOFLOXACIN [Concomitant]
     Active Substance: LEVOFLOXACIN
     Indication: Anti-infective therapy
     Dosage: 0.2 GRAM
     Route: 048
     Dates: start: 20250106, end: 20250107
  24. POTASSIUM CHLORIDE [Concomitant]
     Active Substance: POTASSIUM CHLORIDE
     Indication: Prophylaxis
     Dates: start: 20250407, end: 20250407

REACTIONS (2)
  - Pulmonary inflammatory pseudotumour [Recovered/Resolved]
  - Foot fracture [Recovered/Resolved]

NARRATIVE: CASE EVENT DATE: 20241229
